FAERS Safety Report 9287795 (Version 20)
Quarter: 2021Q3

REPORT INFORMATION
  Report Type: Spontaneous
  Country: US (occurrence: US)
  Receive Date: 20130514
  Receipt Date: 20210730
  Transmission Date: 20211014
  Serious: Yes (Hospitalization, Other)
  Sender: FDA-Public Use
  Company Number: US-PFIZER INC-2013146549

PATIENT
  Age: 57 Year
  Sex: Female
  Weight: 127 kg

DRUGS (71)
  1. XELJANZ [Suspect]
     Active Substance: TOFACITINIB CITRATE
     Indication: RHEUMATOID ARTHRITIS
     Dosage: 5 MG, 2X/DAY
     Route: 048
     Dates: start: 20130307
  2. XANAX [Concomitant]
     Active Substance: ALPRAZOLAM
     Indication: ANXIETY
     Dosage: 2 MG, AS NEEDED
     Route: 048
  3. XANAX [Concomitant]
     Active Substance: ALPRAZOLAM
     Dosage: 0.5 MG, 4 TIMES A DAY AS NEEDED
     Route: 048
  4. FLUCONAZOLE. [Concomitant]
     Active Substance: FLUCONAZOLE
     Dosage: 200 MG, SINGLE
     Route: 048
     Dates: start: 20110524, end: 20110524
  5. NYSTATIN. [Concomitant]
     Active Substance: NYSTATIN
     Indication: ORAL FUNGAL INFECTION
     Dosage: 100000 UNIT/ML MOUTH/THROAT SUSPENSION SWISH AND SWALLOW 5ML 4 TIMES DAILY
     Dates: start: 20120924
  6. VOLTAREN [Concomitant]
     Active Substance: DICLOFENAC SODIUM
     Dosage: 4 G, 4X/DAY (4 GM OF GEL TO AFFECTED AREA 4 TIMES DAILY)
     Dates: start: 20110428
  7. ATORVASTATIN [Concomitant]
     Active Substance: ATORVASTATIN
     Indication: BLOOD CHOLESTEROL INCREASED
     Dosage: 1 PILL AT BEDTIME
  8. COREG [Concomitant]
     Active Substance: CARVEDILOL
     Dosage: 12.5 MG, 2X/DAY
     Route: 048
  9. SIMVASTATIN. [Concomitant]
     Active Substance: SIMVASTATIN
     Dosage: 80 MG, 1X/DAY
     Route: 048
     Dates: start: 20130411
  10. LASIX [Concomitant]
     Active Substance: FUROSEMIDE
     Dosage: UNK
  11. OXYBUTYNIN. [Concomitant]
     Active Substance: OXYBUTYNIN CHLORIDE
     Dosage: UNK
  12. XELJANZ [Suspect]
     Active Substance: TOFACITINIB CITRATE
     Dosage: 5 MG, 2X/DAY
     Route: 048
  13. CELLCEPT [Suspect]
     Active Substance: MYCOPHENOLATE MOFETIL\MYCOPHENOLATE MOFETIL HYDROCHLORIDE
     Dosage: 1000 MG, 2X/DAY
     Route: 048
     Dates: start: 20120326
  14. PREDNISONE. [Concomitant]
     Active Substance: PREDNISONE
     Dosage: 7.5 MG, DAILY
     Route: 048
  15. VITAMIN D?2000,D3 [Concomitant]
     Dosage: 1 DF, DAILY
     Route: 048
     Dates: start: 20110428
  16. KLOR?CON?EF [Concomitant]
     Dosage: 25MEQ IN 6 TO 8 OUNCES OF WATER, ONCE DAILY
     Route: 048
     Dates: start: 20130411
  17. LEXAPRO [Concomitant]
     Active Substance: ESCITALOPRAM OXALATE
     Dosage: 20 MG, AS NEEDED
  18. DILTIAZEM HCL [Concomitant]
     Active Substance: DILTIAZEM HYDROCHLORIDE
     Dosage: 240 MG, IN THE EVENING
     Route: 048
     Dates: start: 20130604
  19. DILTIAZEM HCL [Concomitant]
     Active Substance: DILTIAZEM HYDROCHLORIDE
     Dosage: 120 MG, 1X/DAY
     Route: 048
  20. CIPROFLOXACIN HYDROCHLORIDE. [Concomitant]
     Active Substance: CIPROFLOXACIN HYDROCHLORIDE
     Dosage: 500 MG, EVERY TWELVE HOURS WITH MEALS
     Route: 048
     Dates: start: 20111013
  21. CALCIUM [Concomitant]
     Active Substance: CALCIUM
     Dosage: UNK
  22. WELLBUTRIN XL [Concomitant]
     Active Substance: BUPROPION HYDROCHLORIDE
     Dosage: 300 MG, DAILY
  23. ACETAMINOPHEN W/OXYCODONE [Concomitant]
     Active Substance: ACETAMINOPHEN\OXYCODONE HYDROCHLORIDE
     Indication: PAIN
     Dosage: PARACETAMOL 325/ OXYCODONE HYDROCHLORIDE 10MG 1 TABLET EVERY 4 TO 6 HOURS AS NEEDED
     Dates: start: 20101130
  24. PREDNISONE. [Concomitant]
     Active Substance: PREDNISONE
     Dosage: 7.5 MG, DAILY
  25. BENADRYL [Concomitant]
     Active Substance: DIPHENHYDRAMINE HYDROCHLORIDE
     Dosage: UNK, AS NEEDED
  26. MULTIVITAMINS [Concomitant]
     Active Substance: VITAMINS
     Dosage: UNK, DAILY
  27. AZITHROMYCIN ANHYDROUS. [Concomitant]
     Active Substance: AZITHROMYCIN ANHYDROUS
     Dosage: 2 DF, SINGLE
     Route: 048
     Dates: start: 20130502, end: 20130502
  28. NYSTATIN. [Concomitant]
     Active Substance: NYSTATIN
     Dosage: (100,000 UNITS/ML AS NEEDED )UNK
  29. WELLBUTRIN XL [Concomitant]
     Active Substance: BUPROPION HYDROCHLORIDE
     Dosage: 300 MG, 1X/DAY
     Route: 048
  30. METHOTREXATE. [Concomitant]
     Active Substance: METHOTREXATE
     Dosage: UNK
  31. CHLORTHALIDONE. [Concomitant]
     Active Substance: CHLORTHALIDONE
     Dosage: UNK
  32. OMEPRAZOLE. [Concomitant]
     Active Substance: OMEPRAZOLE
     Dosage: 20 MG, 2X/DAY
     Route: 048
     Dates: start: 20110428
  33. OMEPRAZOLE. [Concomitant]
     Active Substance: OMEPRAZOLE
     Dosage: 20 MG, 1X/DAY
     Route: 048
  34. VITAMIN D?2000,D3 [Concomitant]
     Dosage: 2000 IU, DAILY
  35. COREG [Concomitant]
     Active Substance: CARVEDILOL
     Dosage: 25 MG, 2X/DAY
     Route: 048
     Dates: start: 20111205
  36. XANAX [Concomitant]
     Active Substance: ALPRAZOLAM
     Dosage: 0.25 MG, 2X/DAY
     Route: 048
  37. LEXAPRO [Concomitant]
     Active Substance: ESCITALOPRAM OXALATE
     Dosage: 40 MG, DAILY
     Route: 048
  38. WELLBUTRIN [Concomitant]
     Active Substance: BUPROPION HYDROCHLORIDE
     Dosage: 150 MG, 2X/DAY
  39. LASIX [Concomitant]
     Active Substance: FUROSEMIDE
     Dosage: 40 MG, 1X/DAY
     Route: 048
  40. POTASSIMIN [Concomitant]
     Dosage: 25MEQ , 1 TABLET DISSOLVED
  41. GABAPENTIN. [Concomitant]
     Active Substance: GABAPENTIN
     Dosage: 200 MG, 3X/DAY
     Route: 048
     Dates: start: 20130613
  42. GABAPENTIN. [Concomitant]
     Active Substance: GABAPENTIN
     Dosage: 100 MG, 3X/DAY
     Route: 048
  43. LISINOPRIL. [Concomitant]
     Active Substance: LISINOPRIL
     Dosage: UNK
  44. XELJANZ [Suspect]
     Active Substance: TOFACITINIB CITRATE
     Dosage: 5 MG, 1X/DAY
     Route: 048
  45. CELLCEPT [Suspect]
     Active Substance: MYCOPHENOLATE MOFETIL\MYCOPHENOLATE MOFETIL HYDROCHLORIDE
     Dosage: 500 MG, 2X/DAY
     Route: 048
  46. CELLCEPT [Suspect]
     Active Substance: MYCOPHENOLATE MOFETIL\MYCOPHENOLATE MOFETIL HYDROCHLORIDE
     Dosage: 500 MG 1 PILL IN THE MORNING AND 2 PILLS AT BEDTIME
  47. FOLIC ACID. [Concomitant]
     Active Substance: FOLIC ACID
     Dosage: 1 MG, 1X/DAY
     Route: 048
     Dates: start: 20080226
  48. PREDNISONE. [Concomitant]
     Active Substance: PREDNISONE
     Dosage: 40 MG, DAILY
     Route: 048
     Dates: start: 20120417
  49. PREDNISONE. [Concomitant]
     Active Substance: PREDNISONE
     Dosage: 20 MG, DAILY
     Route: 048
  50. PREDNISONE. [Concomitant]
     Active Substance: PREDNISONE
     Dosage: 5 MG, DAILY
     Route: 048
  51. PREDNISONE. [Concomitant]
     Active Substance: PREDNISONE
     Dosage: 15 MG, DAILY
     Route: 048
  52. VITAMIN D?2000,D3 [Concomitant]
     Dosage: 1 DF, 2X/DAY
     Route: 048
  53. OXYBUTYNIN CHLORIDE. [Concomitant]
     Active Substance: OXYBUTYNIN CHLORIDE
     Indication: PAIN
     Dosage: 5 MG, 4 TIMES DAILY AS NEEDED
     Route: 048
  54. BENADRYL [Concomitant]
     Active Substance: DIPHENHYDRAMINE HYDROCHLORIDE
     Indication: HYPERSENSITIVITY
     Dosage: 25 MG, AT BEDTIME
     Route: 048
     Dates: start: 20130411
  55. FLUCONAZOLE. [Concomitant]
     Active Substance: FLUCONAZOLE
     Dosage: 100 MG, 1X/DAY, DAYS 2?14
     Route: 048
     Dates: start: 20110525
  56. LIDOCAINE VISCOUS [Concomitant]
     Active Substance: LIDOCAINE HYDROCHLORIDE
     Dosage: 2 % MOUTH/THROAT SOLUTION MIX 3 ML OF LIDOCAINE WITH 3 ML MAALOX THREE TIMES PER DAY AS NEEDED
     Dates: start: 20111013
  57. XELJANZ [Suspect]
     Active Substance: TOFACITINIB CITRATE
     Dosage: 5 MG, 2X/DAY
     Route: 048
     Dates: start: 20130403
  58. XELJANZ [Suspect]
     Active Substance: TOFACITINIB CITRATE
     Dosage: 5 MG, 2X/DAY
     Route: 048
     Dates: start: 20140403
  59. NAPROXEN. [Concomitant]
     Active Substance: NAPROXEN
     Dosage: 500 MG, 2X/DAY
     Route: 048
     Dates: start: 20110428
  60. LASIX [Concomitant]
     Active Substance: FUROSEMIDE
     Dosage: 60 MG, DAILY
     Route: 048
  61. CALCIUM [Concomitant]
     Active Substance: CALCIUM
     Dosage: 500 MG, EVERY TWELVE HOURS WITH MEALS
     Route: 048
     Dates: start: 20111013
  62. MAALOX ANTACID [Concomitant]
     Active Substance: ALUMINUM HYDROXIDE\DIMETHICONE\MAGNESIUM HYDROXIDE
     Dosage: 2 % MOUTH/THROAT SOLUTION MIX 3 ML OF LIDOCAINE WITH 3 ML MAALOX THREE TIMES PER DAY AS NEEDED
     Dates: start: 20111013
  63. FEXOFENADINE [Concomitant]
     Active Substance: FEXOFENADINE HYDROCHLORIDE
     Dosage: 180 MG, ONCE DAILY AS NEEDED
     Route: 048
  64. PERCOCET [Concomitant]
     Active Substance: ACETAMINOPHEN\OXYCODONE HYDROCHLORIDE
     Indication: PAIN
     Dosage: 10/325 2 TABLETS EVERY 4?6 HOURS AS NEEDED
  65. PREDNISONE. [Concomitant]
     Active Substance: PREDNISONE
     Dosage: 20 MG, DAILY
     Route: 048
  66. LEXAPRO [Concomitant]
     Active Substance: ESCITALOPRAM OXALATE
     Dosage: 20 MG, DAILY
  67. WELLBUTRIN [Concomitant]
     Active Substance: BUPROPION HYDROCHLORIDE
     Dosage: UNK
  68. DILTIAZEM HCL [Concomitant]
     Active Substance: DILTIAZEM HYDROCHLORIDE
     Dosage: 120 MG, 2X/DAY
  69. AZITHROMYCIN ANHYDROUS. [Concomitant]
     Active Substance: AZITHROMYCIN ANHYDROUS
     Dosage: 1 DF, 1X/DAY
     Route: 048
     Dates: start: 20130503, end: 20130506
  70. INSULIN [Concomitant]
     Active Substance: INSULIN NOS
     Dosage: 31G X 5/16 1 ML MISCELLANEOUS USE 1 Q WK
     Dates: start: 20110829
  71. LIDODERM [Concomitant]
     Active Substance: LIDOCAINE
     Dosage: 5 % EXTERNAL PATCH 2 PATCHED DAILY
     Dates: start: 20110428

REACTIONS (59)
  - Hypotension [Unknown]
  - Ligament rupture [Unknown]
  - Bronchitis [Recovered/Resolved]
  - Arthritis [Unknown]
  - Neck pain [Unknown]
  - Herpes zoster [Recovered/Resolved]
  - Head injury [Unknown]
  - White blood cell count increased [Unknown]
  - Pain in extremity [Unknown]
  - Gastrooesophageal reflux disease [Unknown]
  - Fall [Unknown]
  - Blood creatinine increased [Unknown]
  - Oxygen saturation decreased [Unknown]
  - Asthma [Unknown]
  - Foot fracture [Unknown]
  - Condition aggravated [Unknown]
  - Arthralgia [Unknown]
  - Hyperhidrosis [Unknown]
  - Palpitations [Unknown]
  - Muscular weakness [Not Recovered/Not Resolved]
  - Dyspnoea [Unknown]
  - Viral infection [Unknown]
  - Wheezing [Unknown]
  - Weight increased [Unknown]
  - Insomnia [Unknown]
  - Blood triglycerides decreased [Unknown]
  - Hypoaesthesia [Not Recovered/Not Resolved]
  - Blood urea increased [Unknown]
  - Balance disorder [Unknown]
  - Carpal tunnel syndrome [Unknown]
  - Coronary artery thrombosis [Unknown]
  - Productive cough [Recovering/Resolving]
  - Cold sweat [Unknown]
  - Atelectasis [Unknown]
  - Lung infiltration [Unknown]
  - Weight decreased [Unknown]
  - Paraesthesia [Not Recovered/Not Resolved]
  - Pyrexia [Unknown]
  - Depressed level of consciousness [Recovered/Resolved]
  - Hypercapnia [Unknown]
  - Oedema peripheral [Recovered/Resolved]
  - Spinal stenosis [Unknown]
  - Heart rate increased [Unknown]
  - Limb injury [Unknown]
  - Nausea [Unknown]
  - Chronic obstructive pulmonary disease [Unknown]
  - Poor quality sleep [Not Recovered/Not Resolved]
  - Cough [Recovering/Resolving]
  - Emotional distress [Unknown]
  - Contusion [Unknown]
  - Fatigue [Unknown]
  - Condition aggravated [Not Recovered/Not Resolved]
  - Vomiting [Unknown]
  - Acute kidney injury [Unknown]
  - Bone cyst [Unknown]
  - Back pain [Unknown]
  - Dysphonia [Unknown]
  - Skin ulcer [Recovering/Resolving]
  - Oral fungal infection [Unknown]

NARRATIVE: CASE EVENT DATE: 20130509
